FAERS Safety Report 7797428-9 (Version None)
Quarter: 2011Q4

REPORT INFORMATION
  Report Type: 
  Country: None (occurrence: None)
  Receive Date: 20111005
  Receipt Date: 20111003
  Transmission Date: 20120403
  Serious: Yes (Life-Threatening, Hospitalization)
  Sender: FDA-Public Use
  Company Number: AT-B.I. PHARMACEUTICALS,INC./RIDGEFIELD-2011-AP-00450AP

PATIENT
  Sex: Female
  Weight: 76 kg

DRUGS (6)
  1. PRADAXA [Suspect]
     Indication: HIP ARTHROPLASTY
  2. NOVALGIN [Concomitant]
     Indication: PERIOPERATIVE ANALGESIA
     Dosage: 2000 MG
     Route: 048
     Dates: start: 20110830, end: 20110901
  3. PRADAXA [Suspect]
     Indication: THROMBOSIS PROPHYLAXIS
     Dosage: 220 MG
     Route: 048
     Dates: start: 20110829, end: 20110901
  4. SERACTIL [Concomitant]
     Indication: PERIOPERATIVE ANALGESIA
     Dosage: 800 MG
     Route: 048
     Dates: start: 20110829, end: 20110901
  5. DICLOFENAC SODIUM [Concomitant]
     Indication: PAIN
     Dosage: 150 MG
     Route: 048
     Dates: start: 20110829, end: 20110829
  6. ASPIRIN [Concomitant]
     Dosage: 100 MG
     Route: 048

REACTIONS (3)
  - COLITIS [None]
  - SHOCK HAEMORRHAGIC [None]
  - GASTROINTESTINAL HAEMORRHAGE [None]
